FAERS Safety Report 7273328-8 (Version None)
Quarter: 2011Q1

REPORT INFORMATION
  Report Type: 
  Country: None (occurrence: None)
  Receive Date: 20110203
  Receipt Date: 20100728
  Transmission Date: 20110831
  Serious: No
  Sender: FDA-Public Use
  Company Number: US-ABBOTT-10P-163-0661811-00

PATIENT
  Sex: Female
  Weight: 72.64 kg

DRUGS (4)
  1. SYNTHROID [Suspect]
     Indication: HYPOTHYROIDISM
     Dosage: IN MORNING
     Route: 048
     Dates: start: 20091001
  2. SYNTHROID [Suspect]
     Dosage: TAKING ON AND OFF, DECLINED TO ELABORATE FURTHER.
     Route: 048
     Dates: start: 20030101
  3. IRON SUPPLEMENT [Concomitant]
     Indication: PRODUCT USED FOR UNKNOWN INDICATION
  4. CYTOMEL [Concomitant]
     Indication: PRODUCT USED FOR UNKNOWN INDICATION

REACTIONS (6)
  - DIARRHOEA [None]
  - FATIGUE [None]
  - MALAISE [None]
  - WEIGHT INCREASED [None]
  - HEADACHE [None]
  - RASH [None]
